FAERS Safety Report 23287767 (Version 1)
Quarter: 2023Q4

REPORT INFORMATION
  Report Type: Report from Study
  Country: US (occurrence: US)
  Receive Date: 20231212
  Receipt Date: 20231212
  Transmission Date: 20240110
  Serious: Yes (Hospitalization, Other)
  Sender: FDA-Public Use
  Company Number: US-GILEAD-2023-0654216

PATIENT
  Sex: Male

DRUGS (2)
  1. AZTREONAM LYSINE [Suspect]
     Active Substance: AZTREONAM LYSINE
     Indication: Bacterial infection
     Dosage: INHALE 1 VIAL (75 MG TOTAL) VIA ALTERA NEBULIZER THREE TIMES DAILY FOR 21 DAYS ON AND 21 DAYS OFF
     Route: 055
     Dates: start: 20230323
  2. NIVESTYM [FILGRASTIM] [Concomitant]
     Dosage: 300 MCG/ 0.5 ML PFS 1^S

REACTIONS (2)
  - Pneumonia [Unknown]
  - Off label use [Not Recovered/Not Resolved]
